FAERS Safety Report 10058551 (Version 2)
Quarter: 2014Q2

REPORT INFORMATION
  Report Type: Report from Study
  Country: CA (occurrence: CA)
  Receive Date: 20140404
  Receipt Date: 20140411
  Transmission Date: 20141212
  Serious: Yes (Other)
  Sender: FDA-Public Use
  Company Number: CA-JNJFOC-20140318288

PATIENT
  Age: 14 Year
  Sex: Male
  Weight: 47.9 kg

DRUGS (1)
  1. REMICADE [Suspect]
     Indication: CROHN^S DISEASE
     Route: 042
     Dates: start: 20140214

REACTIONS (2)
  - Gastrointestinal disorder [Unknown]
  - Oral herpes [Unknown]
